FAERS Safety Report 20279817 (Version 1)
Quarter: 2021Q4

REPORT INFORMATION
  Report Type: Spontaneous
  Country: US (occurrence: None)
  Receive Date: 20211231
  Receipt Date: 20211231
  Transmission Date: 20220303
  Serious: No
  Sender: FDA-Public Use
  Company Number: None

PATIENT
  Age: 76 Year
  Sex: Female

DRUGS (1)
  1. MELPHALAN [Suspect]
     Active Substance: MELPHALAN
     Route: 048
     Dates: start: 202104, end: 202104

REACTIONS (1)
  - Death [None]

NARRATIVE: CASE EVENT DATE: 20211020
